FAERS Safety Report 8246647-6 (Version None)
Quarter: 2012Q1

REPORT INFORMATION
  Report Type: 
  Country: None (occurrence: None)
  Receive Date: 20120330
  Receipt Date: 20120321
  Transmission Date: 20120608
  Serious: Yes (Other)
  Sender: FDA-Public Use
  Company Number: JP-JNJFOC-20111202030

PATIENT
  Age: 46 Year
  Sex: Male
  Weight: 63 kg

DRUGS (4)
  1. ISENTRESS [Concomitant]
     Indication: HIV INFECTION
     Route: 048
  2. PREZISTA [Suspect]
     Indication: HIV INFECTION
     Route: 048
  3. RITONAVIR [Concomitant]
     Indication: HIV INFECTION
     Route: 048
  4. ZERIT [Concomitant]
     Indication: HIV INFECTION
     Route: 048

REACTIONS (2)
  - IMMUNE RECONSTITUTION SYNDROME [None]
  - BASEDOW'S DISEASE [None]
